FAERS Safety Report 19478189 (Version 1)
Quarter: 2021Q2

REPORT INFORMATION
  Report Type: Spontaneous
  Country: ES (occurrence: ES)
  Receive Date: 20210630
  Receipt Date: 20210630
  Transmission Date: 20210717
  Serious: Yes (Other)
  Sender: FDA-Public Use
  Company Number: ES-PFIZER INC-2021705011

PATIENT
  Age: 50 Year
  Sex: Female

DRUGS (3)
  1. VANCOMYCIN HCL [Suspect]
     Active Substance: VANCOMYCIN HYDROCHLORIDE
     Indication: INFECTION
     Dosage: 1 G, 2X/DAY
     Route: 042
     Dates: start: 20191207, end: 20191207
  2. AMOXICILLIN. [Suspect]
     Active Substance: AMOXICILLIN
     Indication: INFECTION
     Dosage: 1 DF, 3X/DAY, 1?1?1
     Route: 048
     Dates: start: 20191022, end: 20191030
  3. RIFAMPICIN [Suspect]
     Active Substance: RIFAMPIN
     Indication: INFECTION
     Dosage: 600 MG, DAILY
     Route: 048
     Dates: start: 20191208, end: 20191223

REACTIONS (1)
  - Hepatic cytolysis [Recovered/Resolved]

NARRATIVE: CASE EVENT DATE: 20191216
